APPROVED DRUG PRODUCT: GILDESS 1/20
Active Ingredient: ETHINYL ESTRADIOL; NORETHINDRONE ACETATE
Strength: 0.02MG;1MG
Dosage Form/Route: TABLET;ORAL-21
Application: A077077 | Product #002
Applicant: PH HEALTH LTD
Approved: Jul 24, 2012 | RLD: No | RS: No | Type: DISCN